FAERS Safety Report 8123293-6 (Version None)
Quarter: 2012Q1

REPORT INFORMATION
  Report Type: 
  Country: None (occurrence: None)
  Receive Date: 20120208
  Receipt Date: 20120201
  Transmission Date: 20120608
  Serious: Yes (Death)
  Sender: FDA-Public Use
  Company Number: JP-TEVA-2011001886

PATIENT
  Sex: Male
  Weight: 53.8 kg

DRUGS (8)
  1. BENDAMUSTINE [Suspect]
     Dosage: 120 MG/M2, UID/QD
     Route: 042
     Dates: start: 20110630, end: 20110701
  2. GRANISETRON HYDROCHLORIDE [Concomitant]
     Dates: start: 20110203, end: 20110729
  3. BISOPROLOL FUMARATE [Concomitant]
  4. BENDAMUSTINE [Suspect]
     Indication: EXTRANODAL MARGINAL ZONE B-CELL LYMPHOMA (MALT TYPE)
     Dosage: 120 MG/M2, UID/QD
     Route: 042
     Dates: start: 20110203, end: 20110224
  5. BENDAMUSTINE [Suspect]
     Dosage: 120 MG/M2, UID/QD
     Route: 042
     Dates: start: 20110728
  6. DEXAMETHASONE SODIUM PHOSPHATE [Concomitant]
     Dates: start: 20110203, end: 20110729
  7. DILTIAZEM HYDROCHLORIDE [Concomitant]
  8. SENNOSIDE [Concomitant]

REACTIONS (1)
  - MITRAL VALVE INCOMPETENCE [None]
